FAERS Safety Report 21352568 (Version 3)
Quarter: 2025Q2

REPORT INFORMATION
  Report Type: Report from Study
  Country: US (occurrence: US)
  Receive Date: 20220920
  Receipt Date: 20250618
  Transmission Date: 20250717
  Serious: Yes (Death, Life-Threatening, Hospitalization, Other)
  Sender: AUROBINDO
  Company Number: US-GLAXOSMITHKLINE-US2022GSK126444

PATIENT
  Age: 8 Month
  Sex: Male

DRUGS (20)
  1. LINEZOLID [Suspect]
     Active Substance: LINEZOLID
     Indication: Staphylococcal bacteraemia
     Dosage: 10 MILLIGRAM/KILOGRAM, 3 TIMES A DAY (TOTAL RECEIVED 3 DOSES)
  2. LINEZOLID [Suspect]
     Active Substance: LINEZOLID
     Dosage: 600 MILLIGRAM, TWO TIMES A DAY
     Route: 065
  3. METHADONE [Suspect]
     Active Substance: METHADONE HYDROCHLORIDE
     Indication: Agitation
     Route: 065
  4. METHADONE [Suspect]
     Active Substance: METHADONE HYDROCHLORIDE
     Indication: Pain
     Dosage: 0.75 MILLIGRAM/KILOGRAM, ONCE A DAY
     Route: 065
  5. MORPHINE [Suspect]
     Active Substance: MORPHINE
     Indication: Agitation
     Route: 042
  6. MORPHINE [Suspect]
     Active Substance: MORPHINE
     Indication: Pain
     Route: 042
  7. MORPHINE [Suspect]
     Active Substance: MORPHINE
     Dosage: 130 MICROGRAM/KILOGRAM, EVERY HOUR
     Route: 042
  8. MORPHINE [Suspect]
     Active Substance: MORPHINE
     Dosage: 50 MICROGRAM/KILOGRAM, EVERY HOUR
     Route: 042
  9. MORPHINE [Suspect]
     Active Substance: MORPHINE
     Route: 042
  10. BOSENTAN [Concomitant]
     Active Substance: BOSENTAN
     Indication: Product used for unknown indication
     Route: 065
  11. CHLOROTHIAZIDE [Concomitant]
     Active Substance: CHLOROTHIAZIDE
     Indication: Product used for unknown indication
     Route: 065
  12. CHOLECALCIFEROL [Concomitant]
     Active Substance: CHOLECALCIFEROL
     Indication: Product used for unknown indication
     Route: 065
  13. DEXMEDETOMIDINE [Concomitant]
     Active Substance: DEXMEDETOMIDINE
     Indication: Product used for unknown indication
     Dosage: 1.2 MICROGRAM/KILOGRAM, EVERY HOUR (CONTINUOUS)
     Route: 065
  14. FUROSEMIDE [Concomitant]
     Active Substance: FUROSEMIDE
     Indication: Product used for unknown indication
     Route: 065
  15. IRON [Concomitant]
     Active Substance: IRON
     Indication: Mineral supplementation
     Route: 065
  16. LANSOPRAZOLE [Concomitant]
     Active Substance: LANSOPRAZOLE
     Indication: Product used for unknown indication
     Route: 065
  17. LORAZEPAM [Concomitant]
     Active Substance: LORAZEPAM
     Indication: Product used for unknown indication
     Route: 065
  18. MELATONIN [Concomitant]
     Active Substance: MELATONIN
     Indication: Product used for unknown indication
     Route: 065
  19. SPIRONOLACTONE [Concomitant]
     Active Substance: SPIRONOLACTONE
     Indication: Product used for unknown indication
     Route: 065
  20. ZINC [Concomitant]
     Active Substance: ZINC
     Indication: Mineral supplementation
     Route: 065

REACTIONS (8)
  - Cardiac arrest [Fatal]
  - Drug interaction [Recovering/Resolving]
  - Multiple organ dysfunction syndrome [Recovering/Resolving]
  - Serotonin syndrome [Recovering/Resolving]
  - Liver injury [Recovering/Resolving]
  - Drug clearance decreased [Recovering/Resolving]
  - Shock [Recovering/Resolving]
  - Brain injury [Not Recovered/Not Resolved]
